FAERS Safety Report 14707346 (Version 1)
Quarter: 2018Q2

REPORT INFORMATION
  Report Type: Spontaneous
  Country: RU (occurrence: RU)
  Receive Date: 20180403
  Receipt Date: 20180403
  Transmission Date: 20180711
  Serious: Yes (Hospitalization)
  Sender: FDA-Public Use
  Company Number: RU-ROCHE-2099898

PATIENT
  Age: 77 Year
  Sex: Female

DRUGS (2)
  1. CHLORAMBUCIL [Concomitant]
     Active Substance: CHLORAMBUCIL
     Indication: IMMUNOMODULATORY THERAPY
  2. GAZYVA [Suspect]
     Active Substance: OBINUTUZUMAB
     Indication: IMMUNOMODULATORY THERAPY
     Route: 042

REACTIONS (1)
  - Myocardial infarction [Unknown]

NARRATIVE: CASE EVENT DATE: 20171003
